FAERS Safety Report 5656768-X (Version None)
Quarter: 2008Q1

REPORT INFORMATION
  Report Type: 
  Country: None (occurrence: None)
  Receive Date: 20080307
  Receipt Date: 20080307
  Transmission Date: 20080703
  Serious: Yes (Life-Threatening, Other)
  Sender: FDA-Public Use
  Company Number: None

PATIENT
  Age: 40 Year
  Sex: Female
  Weight: 72.5755 kg

DRUGS (1)
  1. EFFEXOR [Suspect]
     Indication: ANXIETY
     Dosage: 175MG DAILY PO
     Route: 048
     Dates: start: 20070912, end: 20080201

REACTIONS (5)
  - ALOPECIA [None]
  - CONTUSION [None]
  - HEADACHE [None]
  - ONYCHOCLASIS [None]
  - TREMOR [None]
